FAERS Safety Report 5641877-1 (Version None)
Quarter: 2008Q1

REPORT INFORMATION
  Report Type: 
  Country: None (occurrence: None)
  Receive Date: 20080227
  Receipt Date: 20080225
  Transmission Date: 20080703
  Serious: Yes (Life-Threatening, Hospitalization)
  Sender: FDA-Public Use
  Company Number: JP-BOEHRINGER INGELHEIM GMBH, GERMANY-2008-BP-01131NB

PATIENT
  Sex: Male

DRUGS (5)
  1. MICARDIS [Suspect]
     Indication: HYPERTENSION
     Route: 048
     Dates: start: 20061209, end: 20071214
  2. MOBIC [Suspect]
     Indication: ARTHRALGIA
     Dates: start: 20050604, end: 20071214
  3. MEVALOTIN [Concomitant]
     Indication: HYPERLIPIDAEMIA
     Route: 048
     Dates: start: 20041211
  4. PLAVIX [Concomitant]
     Route: 048
     Dates: start: 20070929
  5. CALBLOCK [Concomitant]
     Indication: HYPERTENSION
     Route: 048
     Dates: start: 20050305, end: 20071214

REACTIONS (2)
  - DUODENAL ULCER [None]
  - MYOCARDIAL INFARCTION [None]
